FAERS Safety Report 6239180-4 (Version None)
Quarter: 2009Q2

REPORT INFORMATION
  Report Type: 
  Country: None (occurrence: None)
  Receive Date: 20090618
  Receipt Date: 20090608
  Transmission Date: 20091009
  Serious: Yes (Other)
  Sender: FDA-Public Use
  Company Number: GXKR2009TR06670

PATIENT
  Age: 6 Year
  Sex: Female

DRUGS (2)
  1. ACETAMINOPHEN [Suspect]
     Indication: BONE PAIN
     Dosage: 250 MG, ONCE/ SINGLE, UNKNOWN
  2. NEUPOGEN [Suspect]
     Dosage: 10 UG/KG, QD, SUBCUTANEOUS
     Route: 058

REACTIONS (6)
  - BLOOD POTASSIUM DECREASED [None]
  - BONE PAIN [None]
  - LEUKOCYTOSIS [None]
  - RHABDOMYOLYSIS [None]
  - SHIFT TO THE LEFT [None]
  - VOMITING [None]
